FAERS Safety Report 21504989 (Version 2)
Quarter: 2024Q1

REPORT INFORMATION
  Report Type: Report from Study
  Country: US (occurrence: US)
  Receive Date: 20221025
  Receipt Date: 20240304
  Transmission Date: 20240410
  Serious: No
  Sender: FDA-Public Use
  Company Number: US-ABBVIE-4168716

PATIENT
  Sex: Female

DRUGS (1)
  1. CREON [Suspect]
     Active Substance: PANCRELIPASE AMYLASE\PANCRELIPASE LIPASE\PANCRELIPASE PROTEASE
     Indication: Product used for unknown indication
     Dosage: FORM STRENGTH: 12000 UNIT
     Route: 048

REACTIONS (11)
  - Discomfort [Unknown]
  - Constipation [Unknown]
  - Rash [Unknown]
  - Flatulence [Unknown]
  - Malaise [Unknown]
  - Urticaria [Unknown]
  - Feeling abnormal [Unknown]
  - Extra dose administered [Not Recovered/Not Resolved]
  - Weight decreased [Unknown]
  - Pain [Unknown]
  - Back pain [Unknown]
